FAERS Safety Report 4622278-1 (Version None)
Quarter: 2005Q1

REPORT INFORMATION
  Report Type: 
  Country: None (occurrence: None)
  Receive Date: 20050330
  Receipt Date: 20050223
  Transmission Date: 20050727
  Serious: Yes (Other)
  Sender: FDA-Public Use
  Company Number: PHEH2005US02430

PATIENT
  Age: 63 Year
  Sex: Male

DRUGS (1)
  1. LAMISIL [Suspect]
     Indication: TINEA PEDIS
     Dosage: 250 MG, QD
     Route: 048
     Dates: start: 20010222, end: 20010101

REACTIONS (4)
  - BURNING SENSATION [None]
  - ERYTHEMA [None]
  - NEUROPATHY PERIPHERAL [None]
  - PRURITUS [None]
